FAERS Safety Report 7292757-X (Version None)
Quarter: 2011Q1

REPORT INFORMATION
  Report Type: 
  Country: None (occurrence: None)
  Receive Date: 20110215
  Receipt Date: 20110207
  Transmission Date: 20110831
  Serious: Yes (Hospitalization)
  Sender: FDA-Public Use
  Company Number: US-B.I. PHARMACEUTICALS,INC./RIDGEFIELD-2011-BP-02168BP

PATIENT
  Age: 45 Year
  Sex: Male

DRUGS (3)
  1. LOVASTATIN [Concomitant]
  2. FLOMAX [Suspect]
     Dosage: 0.4 MG
     Dates: start: 20090301, end: 20090301
  3. BP MED [Concomitant]
     Indication: BLOOD PRESSURE

REACTIONS (2)
  - HEADACHE [None]
  - BENIGN INTRACRANIAL HYPERTENSION [None]
